FAERS Safety Report 12503825 (Version 4)
Quarter: 2016Q3

REPORT INFORMATION
  Report Type: Spontaneous
  Country: GB (occurrence: GB)
  Receive Date: 20160628
  Receipt Date: 20160817
  Transmission Date: 20161109
  Serious: Yes (Death, Hospitalization, Other)
  Sender: FDA-Public Use
  Company Number: GB-TEVA-670170ACC

PATIENT
  Age: 66 Year
  Sex: Female
  Weight: 52 kg

DRUGS (13)
  1. CISPLATIN. [Suspect]
     Active Substance: CISPLATIN
     Indication: RADIOSENSITISATION THERAPY
     Dosage: 52 MILLIGRAM: COMPLETED SEVERAL WEEKS AGO
     Route: 065
     Dates: start: 20160429, end: 20160527
  2. ONDANSETRON [Concomitant]
     Active Substance: ONDANSETRON
     Indication: PROPHYLAXIS OF NAUSEA AND VOMITING
     Dosage: 16 MILLIGRAM DAILY; 2 DAYS POST CHEMOTHERAPY
     Route: 048
     Dates: start: 20160418, end: 20160526
  3. MAGNESIUM SULFATE? [Concomitant]
     Indication: DEPILATION
     Dosage: 8MMOL MAGNESIUM SULPHATE, 1000ML WITH CISPLATIN, 1000ML POST CISPLATIN
     Route: 042
     Dates: start: 20160418, end: 20160526
  4. POTASSIUM [Concomitant]
     Active Substance: POTASSIUM
     Indication: DEPILATION
     Dosage: 20 ML POTASSIUM, 1000ML WITH CISPLATIN, 1000ML POST CISPLATIN
     Route: 042
     Dates: start: 20160418, end: 20160526
  5. SODIUM CHLORIDE? [Concomitant]
     Dosage: 142.8571 ML DAILY; PRE-CHEMOTHERAPY
     Route: 042
     Dates: start: 20160418, end: 20160526
  6. CISPLATIN. [Suspect]
     Active Substance: CISPLATIN
     Dosage: FIRST CYCLE OF CHEMOTHERAPY
     Route: 042
     Dates: start: 20160215
  7. ONDANSETRON [Concomitant]
     Active Substance: ONDANSETRON
     Dosage: PRE- CHEMOTHERAPY
     Route: 042
     Dates: start: 20160418, end: 20160526
  8. SODIUM CHLORIDE 0.9% [Concomitant]
     Active Substance: SODIUM CHLORIDE
     Indication: DEPILATION
     Dosage: PRE-CHEMOTHERAPY
     Route: 042
     Dates: start: 20160418, end: 20160526
  9. DEXAMETHASONE. [Concomitant]
     Active Substance: DEXAMETHASONE
     Indication: PROPHYLAXIS OF NAUSEA AND VOMITING
     Dosage: 8 MILLIGRAM DAILY; 3 DAYS POST CHEMOTHERAPY
     Route: 048
     Dates: start: 20160418, end: 20160526
  10. DEXAMETHASONE. [Concomitant]
     Active Substance: DEXAMETHASONE
     Dosage: PRE-CHEMOTHERAPY
     Route: 042
     Dates: start: 20160418, end: 20160526
  11. FUROSEMIDE. [Concomitant]
     Active Substance: FUROSEMIDE
     Indication: DIURETIC THERAPY
     Route: 048
     Dates: start: 20160418, end: 20160526
  12. CISPLATIN. [Suspect]
     Active Substance: CISPLATIN
     Dosage: THIRD CYCLE OF CISPLATIN
     Dates: start: 20160527
  13. SODIUM CHLORIDE? [Concomitant]
     Indication: DEPILATION
     Dosage: 1000ML WITH CISPLATIN, 1000ML POST CISPLATIN
     Route: 042
     Dates: start: 20160418, end: 20160526

REACTIONS (10)
  - Malaise [Fatal]
  - Feeling hot [Fatal]
  - Impaired self-care [Fatal]
  - Cardiac arrest [Fatal]
  - Feeling cold [Fatal]
  - Infection [Fatal]
  - Confusional state [Fatal]
  - Neutropenic sepsis [Fatal]
  - Malaise [Fatal]
  - Loss of consciousness [Fatal]

NARRATIVE: CASE EVENT DATE: 201606
